FAERS Safety Report 5240079-0 (Version None)
Quarter: 2007Q1

REPORT INFORMATION
  Report Type: 
  Country: None (occurrence: None)
  Receive Date: 20070216
  Receipt Date: 20070207
  Transmission Date: 20070707
  Serious: Yes (Other)
  Sender: FDA-Public Use
  Company Number: IE-PFIZER INC-2007010169

PATIENT
  Age: 85 Year
  Sex: Female

DRUGS (3)
  1. LYRICA [Suspect]
     Route: 048
  2. BENZODIAZEPINE DERIVATIVES [Concomitant]
  3. OPIOIDS [Concomitant]

REACTIONS (2)
  - DRUG TOXICITY [None]
  - HALLUCINATION [None]
